FAERS Safety Report 5062464-2 (Version None)
Quarter: 2006Q3

REPORT INFORMATION
  Report Type: 
  Country: None (occurrence: None)
  Receive Date: 20060721
  Receipt Date: 20060630
  Transmission Date: 20061208
  Serious: Yes (Other)
  Sender: FDA-Public Use
  Company Number: 2006RR-02889

PATIENT
  Age: 75 Year
  Sex: Female

DRUGS (4)
  1. SIMVASTATIN [Suspect]
     Indication: LOW DENSITY LIPOPROTEIN INCREASED
     Dosage: 10 MG, QD, ORAL
     Route: 048
     Dates: start: 20031219
  2. LEVOTHYROXINE SODIUM [Suspect]
     Indication: HYPOTHYROIDISM
     Dosage: SEE IMAGE
     Route: 048
  3. ALENDRONATE SODIUM [Concomitant]
  4. CALCIUM SUPPLEMENTS [Concomitant]

REACTIONS (7)
  - ABDOMINAL PAIN [None]
  - BLOOD THYROID STIMULATING HORMONE INCREASED [None]
  - DRUG INTERACTION [None]
  - FATIGUE [None]
  - IMPAIRED GASTRIC EMPTYING [None]
  - LIVER FUNCTION TEST ABNORMAL [None]
  - THERAPY NON-RESPONDER [None]
